FAERS Safety Report 16192351 (Version 2)
Quarter: 2019Q2

REPORT INFORMATION
  Report Type: Spontaneous
  Country: US (occurrence: US)
  Receive Date: 20190412
  Receipt Date: 20190628
  Transmission Date: 20190711
  Serious: Yes (Other)
  Sender: FDA-Public Use
  Company Number: US-SA-2019SA098262

PATIENT
  Age: 41 Year
  Sex: Female
  Weight: 74.9 kg

DRUGS (21)
  1. PEGFILGRASTIM [Concomitant]
     Active Substance: PEGFILGRASTIM
  2. ACCOLATE [Concomitant]
     Active Substance: ZAFIRLUKAST
  3. ALLEGRA [Concomitant]
     Active Substance: FEXOFENADINE HYDROCHLORIDE
  4. ULTRAM [Concomitant]
     Active Substance: TRAMADOL HYDROCHLORIDE
  5. TAXOTERE [Suspect]
     Active Substance: DOCETAXEL
     Dosage: 179 MG, UNK
     Route: 042
     Dates: start: 20021227, end: 20021227
  6. CYTOXAN [Concomitant]
     Active Substance: CYCLOPHOSPHAMIDE
  7. COUMADIN [Concomitant]
     Active Substance: WARFARIN SODIUM
  8. NEUVAX [Concomitant]
  9. NEOSAR [Concomitant]
     Active Substance: CYCLOPHOSPHAMIDE
  10. XOPENEX [Concomitant]
     Active Substance: LEVALBUTEROL HYDROCHLORIDE
  11. SERZONE [Concomitant]
     Active Substance: NEFAZODONE HYDROCHLORIDE
  12. DURAGESIC [Concomitant]
     Active Substance: FENTANYL
  13. TAXOTERE [Suspect]
     Active Substance: DOCETAXEL
     Indication: BREAST CANCER FEMALE
     Dosage: UNK UNK, Q3W, 177.178.179 MG
     Route: 042
     Dates: start: 20021206, end: 20021206
  14. TAXOTERE [Suspect]
     Active Substance: DOCETAXEL
     Dosage: 177 MG, UNK
     Route: 042
     Dates: start: 20030117, end: 20030117
  15. TAXOTERE [Suspect]
     Active Substance: DOCETAXEL
     Dosage: UNK UNK, Q3W, 177.178.179 MG
     Route: 042
     Dates: start: 20030207, end: 20030207
  16. PREDNISON [Concomitant]
     Active Substance: PREDNISONE
  17. CELEBREX [Concomitant]
     Active Substance: CELECOXIB
  18. ZANTAC [Concomitant]
     Active Substance: RANITIDINE HYDROCHLORIDE
  19. DARVOCET [Concomitant]
     Active Substance: ACETAMINOPHEN\PROPOXYPHENE HYDROCHLORIDE
  20. ADRIAMYCIN [Concomitant]
     Active Substance: DOXORUBICIN HYDROCHLORIDE
  21. NEXIUM [Concomitant]
     Active Substance: ESOMEPRAZOLE MAGNESIUM

REACTIONS (1)
  - Alopecia [Not Recovered/Not Resolved]

NARRATIVE: CASE EVENT DATE: 20030807
